FAERS Safety Report 13686068 (Version 1)
Quarter: 2017Q2

REPORT INFORMATION
  Report Type: Spontaneous
  Country: JP (occurrence: JP)
  Receive Date: 20170623
  Receipt Date: 20170623
  Transmission Date: 20170830
  Serious: Yes (Hospitalization, Other)
  Sender: FDA-Public Use
  Company Number: JP-PFIZER INC-2017272777

PATIENT
  Age: 67 Year
  Sex: Male
  Weight: 48 kg

DRUGS (67)
  1. CAMPTO [Suspect]
     Active Substance: IRINOTECAN
     Dosage: 186 MG, 1X/DAY (CYCLE)
     Route: 041
     Dates: start: 20160927, end: 20160927
  2. CAMPTO [Suspect]
     Active Substance: IRINOTECAN
     Dosage: 186 MG, 1X/DAY (CYCLE)
     Route: 041
     Dates: start: 20161115, end: 20161115
  3. LEVOLEUCOVORIN CALCIUM. [Suspect]
     Active Substance: LEVOLEUCOVORIN CALCIUM
     Dosage: 298 MG, 1X/DAY (CYCLE)
     Route: 041
     Dates: start: 20170307, end: 20170307
  4. ELPLAT [Suspect]
     Active Substance: OXALIPLATIN
     Dosage: 96 MG, 1X/DAY (CYCLE)
     Route: 041
     Dates: start: 20160913, end: 20160913
  5. 5-FU [Suspect]
     Active Substance: FLUOROURACIL
     Dosage: 3576 MG, UNK (CYCLE) (ONCE IN 2DAYS)
     Route: 041
     Dates: start: 20170131, end: 20170131
  6. AVASTIN [Suspect]
     Active Substance: BEVACIZUMAB
     Indication: RECTAL CANCER
     Dosage: 241 MG, 1X/DAY (CYCLE)
     Route: 041
     Dates: start: 20160823, end: 20160823
  7. AVASTIN [Suspect]
     Active Substance: BEVACIZUMAB
     Dosage: 241 MG, 1X/DAY (CYCLE)
     Route: 041
     Dates: start: 20161129, end: 20161129
  8. CAMPTO [Suspect]
     Active Substance: IRINOTECAN
     Indication: RECTAL CANCER
     Dosage: 223 MG, 1X/DAY (CYCLE)
     Route: 041
     Dates: start: 20160823, end: 20160823
  9. CAMPTO [Suspect]
     Active Substance: IRINOTECAN
     Dosage: 186 MG, 1X/DAY (CYCLE)
     Route: 041
     Dates: start: 20160913, end: 20160913
  10. CAMPTO [Suspect]
     Active Substance: IRINOTECAN
     Dosage: 186 MG, 1X/DAY (CYCLE)
     Route: 041
     Dates: start: 20170118, end: 20170118
  11. LEVOLEUCOVORIN CALCIUM. [Suspect]
     Active Substance: LEVOLEUCOVORIN CALCIUM
     Dosage: 298 MG, 1X/DAY (CYCLE)
     Route: 041
     Dates: start: 20160927, end: 20160927
  12. LEVOLEUCOVORIN CALCIUM. [Suspect]
     Active Substance: LEVOLEUCOVORIN CALCIUM
     Dosage: 298 MG, 1X/DAY (CYCLE)
     Route: 041
     Dates: start: 20161018, end: 20161018
  13. ELPLAT [Suspect]
     Active Substance: OXALIPLATIN
     Dosage: 96 MG, 1X/DAY (CYCLE)
     Route: 041
     Dates: start: 20161018, end: 20161018
  14. ELPLAT [Suspect]
     Active Substance: OXALIPLATIN
     Dosage: 96 MG, 1X/DAY (CYCLE)
     Route: 041
     Dates: start: 20161115, end: 20161115
  15. ELPLAT [Suspect]
     Active Substance: OXALIPLATIN
     Dosage: 96 MG, 1X/DAY (CYCLE)
     Route: 041
     Dates: start: 20170307, end: 20170307
  16. 5-FU [Suspect]
     Active Substance: FLUOROURACIL
     Dosage: 3576 MG, UNK (CYCLE) (ONCE IN 2DAYS)
     Dates: start: 20161018, end: 20161018
  17. AVASTIN [Suspect]
     Active Substance: BEVACIZUMAB
     Dosage: 241 MG, 1X/DAY (CYCLE)
     Route: 041
     Dates: start: 20170404, end: 20170404
  18. CALONAL [Concomitant]
     Active Substance: ACETAMINOPHEN
     Dosage: UNK
     Dates: start: 20170608
  19. CAMPTO [Suspect]
     Active Substance: IRINOTECAN
     Dosage: 186 MG, 1X/DAY (CYCLE)
     Route: 041
     Dates: start: 20170131, end: 20170131
  20. CAMPTO [Suspect]
     Active Substance: IRINOTECAN
     Dosage: 186 MG, 1X/DAY (CYCLE)
     Route: 041
     Dates: start: 20170307, end: 20170307
  21. LEVOLEUCOVORIN CALCIUM. [Suspect]
     Active Substance: LEVOLEUCOVORIN CALCIUM
     Dosage: 298 MG, 1X/DAY (CYCLE)
     Route: 041
     Dates: start: 20160913, end: 20160913
  22. LEVOLEUCOVORIN CALCIUM. [Suspect]
     Active Substance: LEVOLEUCOVORIN CALCIUM
     Dosage: 298 MG, 1X/DAY (CYCLE)
     Route: 041
     Dates: start: 20161115, end: 20161115
  23. LEVOLEUCOVORIN CALCIUM. [Suspect]
     Active Substance: LEVOLEUCOVORIN CALCIUM
     Dosage: 298 MG, 1X/DAY (CYCLE)
     Route: 041
     Dates: start: 20170509, end: 20170509
  24. LEVOLEUCOVORIN CALCIUM. [Suspect]
     Active Substance: LEVOLEUCOVORIN CALCIUM
     Dosage: 298 MG, 1X/DAY (CYCLE)
     Route: 041
     Dates: start: 20170523, end: 20170523
  25. ELPLAT [Suspect]
     Active Substance: OXALIPLATIN
     Indication: RECTAL CANCER
     Dosage: 126 MG, 1X/DAY (CYCLE)
     Route: 041
     Dates: start: 20160823, end: 20160823
  26. 5-FU [Suspect]
     Active Substance: FLUOROURACIL
     Indication: RECTAL CANCER
     Dosage: 3576 MG, UNK (CYCLE) (ONCE IN 2DAYS)
     Route: 041
     Dates: start: 20160823, end: 20160823
  27. 5-FU [Suspect]
     Active Substance: FLUOROURACIL
     Dosage: 3576 MG, UNK (CYCLE) (ONCE IN 2DAYS)
     Route: 041
     Dates: start: 20160927, end: 20160927
  28. AVASTIN [Suspect]
     Active Substance: BEVACIZUMAB
     Dosage: 241 MG, 1X/DAY (CYCLE)
     Route: 041
     Dates: start: 20161115, end: 20161115
  29. AVASTIN [Suspect]
     Active Substance: BEVACIZUMAB
     Dosage: 241 MG, 1X/DAY (CYCLE)
     Route: 041
     Dates: start: 20170118, end: 20170118
  30. AVASTIN [Suspect]
     Active Substance: BEVACIZUMAB
     Dosage: 241 MG, 1X/DAY (CYCLE)
     Route: 041
     Dates: start: 20170131, end: 20170131
  31. AVASTIN [Suspect]
     Active Substance: BEVACIZUMAB
     Dosage: 241 MG, 1X/DAY (CYCLE)
     Route: 041
     Dates: start: 20170222, end: 20170222
  32. LEVOLEUCOVORIN CALCIUM. [Suspect]
     Active Substance: LEVOLEUCOVORIN CALCIUM
     Dosage: 298 MG, 1X/DAY (CYCLE)
     Route: 041
     Dates: start: 20161129, end: 20161129
  33. LEVOLEUCOVORIN CALCIUM. [Suspect]
     Active Substance: LEVOLEUCOVORIN CALCIUM
     Dosage: 298 MG, 1X/DAY (CYCLE)
     Route: 041
     Dates: start: 20170118, end: 20170118
  34. ELPLAT [Suspect]
     Active Substance: OXALIPLATIN
     Dosage: 96 MG, 1X/DAY (CYCLE)
     Route: 041
     Dates: start: 20161221, end: 20161221
  35. 5-FU [Suspect]
     Active Substance: FLUOROURACIL
     Dosage: 3576 MG, UNK (CYCLE) (ONCE IN 2DAYS)
     Route: 041
     Dates: start: 20160913, end: 20160913
  36. 5-FU [Suspect]
     Active Substance: FLUOROURACIL
     Dosage: 3576 MG, UNK (CYCLE) (ONCE IN 2DAYS)
     Route: 041
     Dates: start: 20161115, end: 20161115
  37. 5-FU [Suspect]
     Active Substance: FLUOROURACIL
     Dosage: 3476 MG, UNK (CYCLE) (ONCE IN 2DAYS)
     Route: 041
     Dates: start: 20161221, end: 20161221
  38. AVASTIN [Suspect]
     Active Substance: BEVACIZUMAB
     Dosage: 241 MG, 1X/DAY (CYCLE)
     Route: 041
     Dates: start: 20161221, end: 20161221
  39. AVASTIN [Suspect]
     Active Substance: BEVACIZUMAB
     Dosage: 241 MG, 1X/DAY (CYCLE)
     Route: 041
     Dates: start: 20170509, end: 20170509
  40. CAMPTO [Suspect]
     Active Substance: IRINOTECAN
     Dosage: 186 MG, 1X/DAY (CYCLE)
     Route: 041
     Dates: start: 20161018, end: 20161018
  41. CAMPTO [Suspect]
     Active Substance: IRINOTECAN
     Dosage: 186 MG, 1X/DAY (CYCLE)
     Route: 041
     Dates: start: 20170222, end: 20170222
  42. LEVOLEUCOVORIN CALCIUM. [Suspect]
     Active Substance: LEVOLEUCOVORIN CALCIUM
     Dosage: 298 MG, 1X/DAY (CYCLE)
     Route: 041
     Dates: start: 20161221, end: 20161221
  43. LEVOLEUCOVORIN CALCIUM. [Suspect]
     Active Substance: LEVOLEUCOVORIN CALCIUM
     Dosage: 298 MG, 1X/DAY (CYCLE)
     Route: 041
     Dates: start: 20170222, end: 20170222
  44. ELPLAT [Suspect]
     Active Substance: OXALIPLATIN
     Dosage: 96 MG, 1X/DAY (CYCLE)
     Route: 041
     Dates: start: 20170131, end: 20170131
  45. 5-FU [Suspect]
     Active Substance: FLUOROURACIL
     Dosage: 3576 MG, UNK (CYCLE) (ONCE IN 2DAYS)
     Route: 041
     Dates: start: 20161129, end: 20161129
  46. 5-FU [Suspect]
     Active Substance: FLUOROURACIL
     Dosage: 3576 MG, UNK (CYCLE) (CYCLE) (ONCE IN 2DAYS)
     Route: 041
     Dates: start: 20170118, end: 20170118
  47. 5-FU [Suspect]
     Active Substance: FLUOROURACIL
     Dosage: 3576 MG, UNK (CYCLE) (ONCE IN 2DAYS)
     Route: 041
     Dates: start: 20170523, end: 20170523
  48. CAMPTO [Suspect]
     Active Substance: IRINOTECAN
     Dosage: 186 MG, 1X/DAY (CYCLE)
     Route: 041
     Dates: start: 20161221, end: 20161221
  49. CAMPTO [Suspect]
     Active Substance: IRINOTECAN
     Dosage: 186 MG, 1X/DAY (CYCLE)
     Route: 041
     Dates: start: 20170404, end: 20170404
  50. LEVOLEUCOVORIN CALCIUM. [Suspect]
     Active Substance: LEVOLEUCOVORIN CALCIUM
     Indication: RECTAL CANCER
     Dosage: 298 MG, 1X/DAY (CYCLE)
     Route: 041
     Dates: start: 20160823, end: 20160823
  51. ELPLAT [Suspect]
     Active Substance: OXALIPLATIN
     Dosage: 96 MG, 1X/DAY (CYCLE)
     Route: 041
     Dates: start: 20161129, end: 20161129
  52. ELPLAT [Suspect]
     Active Substance: OXALIPLATIN
     Dosage: 96 MG, 1X/DAY (CYCLE)
     Route: 041
     Dates: start: 20170404, end: 20170404
  53. 5-FU [Suspect]
     Active Substance: FLUOROURACIL
     Dosage: 3576 MG, UNK  (CYCLE) (ONCE IN 2DAYS)
     Route: 041
     Dates: start: 20170222, end: 20170222
  54. 5-FU [Suspect]
     Active Substance: FLUOROURACIL
     Dosage: 3576 MG, UNK  (CYCLE) (ONCE IN 2DAYS)
     Route: 041
     Dates: start: 20170307, end: 20170307
  55. 5-FU [Suspect]
     Active Substance: FLUOROURACIL
     Dosage: 3576 MG, UNK (CYCLE) (ONCE IN 2DAYS)
     Route: 041
     Dates: start: 20170404, end: 20170404
  56. 5-FU [Suspect]
     Active Substance: FLUOROURACIL
     Dosage: 3576 MG, UNK (CYCLE) (ONCE IN 2DAYS)
     Route: 041
     Dates: start: 20170509, end: 20170509
  57. LEVOLEUCOVORIN CALCIUM. [Suspect]
     Active Substance: LEVOLEUCOVORIN CALCIUM
     Dosage: 298 MG, 1X/DAY (CYCLE)
     Route: 041
     Dates: start: 20170131, end: 20170131
  58. LEVOLEUCOVORIN CALCIUM. [Suspect]
     Active Substance: LEVOLEUCOVORIN CALCIUM
     Dosage: 298 MG, 1X/DAY (CYCLE)
     Route: 041
     Dates: start: 20170404, end: 20170404
  59. ELPLAT [Suspect]
     Active Substance: OXALIPLATIN
     Dosage: 96 MG, 1X/DAY (CYCLE)
     Route: 041
     Dates: start: 20170118, end: 20170118
  60. ELPLAT [Suspect]
     Active Substance: OXALIPLATIN
     Dosage: 96 MG, 1X/DAY (CYCLE)
     Route: 041
     Dates: start: 20170222, end: 20170222
  61. AVASTIN [Suspect]
     Active Substance: BEVACIZUMAB
     Dosage: 241 MG, 1X/DAY (CYCLE)
     Route: 041
     Dates: start: 20161018, end: 20161018
  62. AVASTIN [Suspect]
     Active Substance: BEVACIZUMAB
     Dosage: 241 MG, 1X/DAY (CYCLE)
     Route: 041
     Dates: start: 20170307, end: 20170307
  63. AVASTIN [Suspect]
     Active Substance: BEVACIZUMAB
     Dosage: 241 MG, 1X/DAY (CYCLE)
     Route: 041
     Dates: start: 20170523, end: 20170523
  64. CAMPTO [Suspect]
     Active Substance: IRINOTECAN
     Dosage: 186 UNK, UNK (CYCLE)
     Route: 041
     Dates: start: 20161129, end: 20161129
  65. ELPLAT [Suspect]
     Active Substance: OXALIPLATIN
     Dosage: 96 MG, 1X/DAY (CYCLE)
     Route: 041
     Dates: start: 20160927, end: 20160927
  66. AVASTIN [Suspect]
     Active Substance: BEVACIZUMAB
     Dosage: 241 MG, 1X/DAY (CYCLE)
     Route: 041
     Dates: start: 20160913, end: 20160913
  67. AVASTIN [Suspect]
     Active Substance: BEVACIZUMAB
     Dosage: 241 MG, 1X/DAY (CYCLE)
     Route: 041
     Dates: start: 20160927, end: 20160927

REACTIONS (16)
  - Alanine aminotransferase increased [Unknown]
  - Decreased appetite [Unknown]
  - Alopecia [Unknown]
  - Hypoalbuminaemia [Unknown]
  - Neutrophil count decreased [Unknown]
  - Platelet count decreased [Unknown]
  - Nausea [Unknown]
  - Fatigue [Unknown]
  - Pyrexia [Not Recovered/Not Resolved]
  - White blood cell count decreased [Unknown]
  - Malaise [Unknown]
  - Epistaxis [Unknown]
  - Blood alkaline phosphatase increased [Unknown]
  - Blood bilirubin increased [Unknown]
  - Peripheral sensory neuropathy [Unknown]
  - Fracture [Unknown]

NARRATIVE: CASE EVENT DATE: 20170608
